FAERS Safety Report 23045384 (Version 1)
Quarter: 2023Q4

REPORT INFORMATION
  Report Type: Spontaneous
  Country: US (occurrence: US)
  Receive Date: 20231009
  Receipt Date: 20231009
  Transmission Date: 20240110
  Serious: No
  Sender: FDA-Public Use
  Company Number: US-BRISTOL-MYERS SQUIBB COMPANY-2023-142543

PATIENT
  Age: 75 Year
  Sex: Female

DRUGS (1)
  1. ORENCIA [Suspect]
     Active Substance: ABATACEPT
     Indication: Psoriatic arthropathy
     Route: 058
     Dates: start: 2023

REACTIONS (5)
  - Drug ineffective [Unknown]
  - Pain [Unknown]
  - Erythema [Unknown]
  - Pruritus [Unknown]
  - Thermal burn [Unknown]

NARRATIVE: CASE EVENT DATE: 20231001
